FAERS Safety Report 5804521-6 (Version None)
Quarter: 2008Q3

REPORT INFORMATION
  Report Type: 
  Country: None (occurrence: None)
  Receive Date: 20080707
  Receipt Date: 20080707
  Transmission Date: 20090109
  Serious: No
  Sender: FDA-Public Use
  Company Number: None

PATIENT
  Sex: Female

DRUGS (1)
  1. RAPTIVA [Suspect]
     Dosage: 0.8ML 1ST DOSE THEN 1.1ML WEEKLY SQ
     Route: 058

REACTIONS (7)
  - ABDOMINAL PAIN UPPER [None]
  - DRUG HYPERSENSITIVITY [None]
  - PAIN OF SKIN [None]
  - SKIN CHAPPED [None]
  - SKIN HAEMORRHAGE [None]
  - SKIN IRRITATION [None]
  - STOMACH DISCOMFORT [None]
